FAERS Safety Report 6028984-9 (Version None)
Quarter: 2008Q4

REPORT INFORMATION
  Report Type: 
  Country: None (occurrence: None)
  Receive Date: 20081231
  Receipt Date: 20081231
  Transmission Date: 20090506
  Serious: Yes (Other)
  Sender: FDA-Public Use
  Company Number: 1-17147359

PATIENT
  Age: 60 Year
  Sex: Male

DRUGS (1)
  1. MOMETASONE FUROATE OINTMENT 0.1% [Suspect]
     Indication: NEURALGIA
     Dosage: TWICE DAILY, CUTANEOUS
     Route: 003

REACTIONS (3)
  - BLEPHARITIS [None]
  - INFECTION PARASITIC [None]
  - RASH VESICULAR [None]
